FAERS Safety Report 7407672-8 (Version None)
Quarter: 2011Q2

REPORT INFORMATION
  Report Type: 
  Country: None (occurrence: None)
  Receive Date: 20110412
  Receipt Date: 20101102
  Transmission Date: 20111010
  Serious: Yes (Life-Threatening)
  Sender: FDA-Public Use
  Company Number: JP-BAYER-201015146BYL

PATIENT
  Age: 89 Year
  Sex: Male
  Weight: 56 kg

DRUGS (13)
  1. MUCOSIL-10 [Concomitant]
     Indication: COUGH
     Dosage: 45 MG (DAILY DOSE), , ORAL
     Route: 048
     Dates: end: 20101020
  2. NORVASC [Concomitant]
     Indication: HYPERTENSION
     Dosage: 2.5 MG (DAILY DOSE), , ORAL
     Route: 048
  3. MUCOSIL-10 [Concomitant]
  4. MUCOSIL-10 [Concomitant]
     Indication: PRODUCTIVE COUGH
  5. RENOPENT [Concomitant]
  6. NORVASC [Concomitant]
  7. AVELOX [Suspect]
     Indication: RESPIRATORY TRACT INFECTION
     Route: 048
     Dates: start: 20101009, end: 20101012
  8. KLARICID [Suspect]
     Indication: COUGH
     Dosage: 400 MG (DAILY DOSE), BID, ORAL
     Route: 048
     Dates: start: 20100901, end: 20101012
  9. KLARICID [Suspect]
     Indication: PRODUCTIVE COUGH
  10. RENOPENT [Concomitant]
     Indication: HYPERTENSION
     Dosage: 5 MG (DAILY DOSE), , ORAL
     Route: 048
  11. KLARICID [Suspect]
  12. FLUITRAN [Concomitant]
     Indication: OEDEMA
     Dosage: 1 MG (DAILY DOSE), , ORAL
     Route: 048
  13. FLUITRAN [Concomitant]

REACTIONS (4)
  - OEDEMA PERIPHERAL [None]
  - ELECTROCARDIOGRAM QT PROLONGED [None]
  - DYSPNOEA [None]
  - TORSADE DE POINTES [None]
